FAERS Safety Report 15030815 (Version 1)
Quarter: 2018Q2

REPORT INFORMATION
  Report Type: Spontaneous
  Country: ES (occurrence: ES)
  Receive Date: 20180619
  Receipt Date: 20180619
  Transmission Date: 20180711
  Serious: Yes (Death, Hospitalization)
  Sender: FDA-Public Use
  Company Number: ES-TEVA-2018-ES-908943

PATIENT
  Age: 72 Year
  Sex: Male

DRUGS (4)
  1. TRANKIMAZIN 0,25 MG COMPRIMIDOS , 30 COMPRIMIDOS [Concomitant]
     Dosage: 0-0-1
     Route: 048
     Dates: start: 20161020
  2. ADIRO 100 MG COMPRIMIDOS GASTRORRESISTENTES EFG , 30 COMPRIMIDOS [Concomitant]
     Active Substance: ASPIRIN
     Dosage: 0-1-0
     Route: 048
     Dates: start: 20161020
  3. COROPRES 12,5 MG COMPRIMIDOS 28 [Concomitant]
     Dosage: 1-0-1
     Route: 048
     Dates: start: 20161020
  4. PREDNISONA (886A) [Suspect]
     Active Substance: PREDNISONE
     Indication: AUTOIMMUNE HEPATITIS
     Dosage: 40 MG DIA
     Route: 048
     Dates: start: 20161020, end: 20170727

REACTIONS (1)
  - Pneumonia necrotising [Fatal]

NARRATIVE: CASE EVENT DATE: 20170704
